FAERS Safety Report 9198324 (Version 2)
Quarter: 2013Q2

REPORT INFORMATION
  Report Type: Spontaneous
  Country: GB (occurrence: GB)
  Receive Date: 20130329
  Receipt Date: 20130410
  Transmission Date: 20140414
  Serious: Yes (Hospitalization)
  Sender: FDA-Public Use
  Company Number: GB-ABBOTT-13X-167-1066679-00

PATIENT
  Age: 49 Year
  Sex: Female

DRUGS (5)
  1. VALPROATE SODIUM [Suspect]
     Indication: EPILEPSY
     Dosage: 6G 1 IN 1 TOTAL
     Dates: start: 20030808, end: 20030808
  2. IBUPROFEN [Suspect]
     Indication: UNEVALUABLE EVENT
  3. LANSOPRAZOLE [Suspect]
     Indication: UNEVALUABLE EVENT
  4. DIAZEPAM [Suspect]
     Indication: UNEVALUABLE EVENT
     Route: 065
  5. CLOZAPINE [Concomitant]
     Indication: PRODUCT USED FOR UNKNOWN INDICATION

REACTIONS (7)
  - Feeling hot [Recovered/Resolved]
  - Somnolence [Recovered/Resolved]
  - Ataxia [Recovered/Resolved]
  - Overdose [Unknown]
  - Hyperhidrosis [Recovered/Resolved]
  - Disturbance in attention [Recovered/Resolved]
  - Sedation [Recovered/Resolved]
